FAERS Safety Report 8586478-0 (Version None)
Quarter: 2012Q3

REPORT INFORMATION
  Report Type: 
  Country: None (occurrence: None)
  Receive Date: 20120810
  Receipt Date: 20120801
  Transmission Date: 20120928
  Serious: Yes (Other)
  Sender: FDA-Public Use
  Company Number: JP-BRISTOL-MYERS SQUIBB COMPANY-16839250

PATIENT
  Age: 5 Decade
  Sex: Female

DRUGS (1)
  1. ABILIFY [Suspect]
     Dosage: INITIALLY 9MG/DAY THEN INCREASED TO 12MG/DAY LATER REDUCED TO 3MG/DAY
     Route: 048
     Dates: start: 20110101

REACTIONS (2)
  - APHAGIA [None]
  - ASTHENIA [None]
